FAERS Safety Report 7331717-7 (Version None)
Quarter: 2011Q1

REPORT INFORMATION
  Report Type: 
  Country: None (occurrence: None)
  Receive Date: 20110304
  Receipt Date: 20110223
  Transmission Date: 20110831
  Serious: Yes (Other)
  Sender: FDA-Public Use
  Company Number: PHHY2010US49292

PATIENT
  Sex: Female

DRUGS (2)
  1. EXTAVIA [Suspect]
     Dosage: 25 MG, QOD
     Route: 058
     Dates: start: 20100602
  2. EXTAVIA [Suspect]
     Indication: MULTIPLE SCLEROSIS
     Dosage: 0.25 MG, QOD
     Route: 058
     Dates: start: 20100520

REACTIONS (5)
  - VISION BLURRED [None]
  - EYE INFECTION [None]
  - ABSCESS LIMB [None]
  - INTRACRANIAL ANEURYSM [None]
  - INFECTION [None]
